FAERS Safety Report 9585735 (Version 2)
Quarter: 2013Q4

REPORT INFORMATION
  Report Type: Spontaneous
  Country: TR (occurrence: TR)
  Receive Date: 20131003
  Receipt Date: 20131018
  Transmission Date: 20140711
  Serious: Yes (Death)
  Sender: FDA-Public Use
  Company Number: TR-ALEXION PHARMACEUTICALS INC.-A201302540

PATIENT
  Age: 1 Month
  Sex: Male

DRUGS (2)
  1. SOLIRIS 300MG [Suspect]
     Indication: HAEMOLYTIC URAEMIC SYNDROME
     Dosage: 300 MG, QW
     Route: 042
     Dates: start: 20130801, end: 20130808
  2. SOLIRIS 300MG [Suspect]
     Dosage: 300 MG, Q3W
     Route: 042
     Dates: start: 20130808

REACTIONS (1)
  - Pulmonary hypertension [Fatal]
